FAERS Safety Report 6465617 (Version 6)
Quarter: 2014Q1

REPORT INFORMATION
  Report Type: Report from Study
  Country: FR (occurrence: FR)
  Receive Date: 20071113
  Receipt Date: 20140116
  Transmission Date: 20141002
  Serious: Yes (Congenital Anomaly, Other)
  Sender: FDA-Public Use
  Company Number: FR-GILEAD-2004-0007737

PATIENT
  Age: 0 Day
  Sex: Male
  Weight: 3.37 kg

DRUGS (6)
  1. TENOFOVIR DISOPROXIL FUMARATE [Suspect]
     Indication: HIV INFECTION
     Dosage: 300 MG, QD
     Route: 064
     Dates: start: 20040601, end: 20040910
  2. VIRACEPT [Suspect]
     Indication: HIV INFECTION
     Route: 064
     Dates: start: 20040130, end: 20040601
  3. COMBIVIR [Suspect]
     Indication: HIV INFECTION
     Dosage: 2 UNKNOWN, QD
     Route: 064
     Dates: start: 20040130, end: 20040601
  4. LOPINAVIR/RITONAVIR [Suspect]
     Indication: HIV INFECTION
     Dosage: 6 UNKNOWN, QD
     Route: 064
     Dates: start: 20040601, end: 20040910
  5. RETROVIR [Suspect]
     Indication: HIV INFECTION
     Route: 064
     Dates: start: 20040601, end: 20040720
  6. FOLATE [Concomitant]
     Indication: SUPPLEMENTATION THERAPY
     Route: 064

REACTIONS (4)
  - Cardiac murmur [Unknown]
  - Abdominal hernia [Unknown]
  - Cryptorchism [Unknown]
  - Abdominal distension [Unknown]
